FAERS Safety Report 18186654 (Version 2)
Quarter: 2022Q4

REPORT INFORMATION
  Report Type: Spontaneous
  Country: US (occurrence: US)
  Receive Date: 20200824
  Receipt Date: 20221013
  Transmission Date: 20230112
  Serious: No
  Sender: FDA-Public Use
  Company Number: US-CELLTRION INC.-2020US019061

PATIENT

DRUGS (1)
  1. INFLECTRA [Suspect]
     Active Substance: INFLIXIMAB-DYYB
     Indication: Psoriatic arthropathy
     Dosage: 800MG ON WEEKS 0,2,4, 8 THEN EVERY 8 WEEKS
     Route: 065

REACTIONS (2)
  - Product prescribing issue [Unknown]
  - Off label use [Unknown]
